FAERS Safety Report 14664011 (Version 1)
Quarter: 2018Q1

REPORT INFORMATION
  Report Type: Spontaneous
  Country: ES (occurrence: ES)
  Receive Date: 20180318
  Receipt Date: 20180318
  Transmission Date: 20180509
  Serious: Yes (Other)
  Sender: FDA-Public Use
  Company Number: None

PATIENT
  Age: 63 Year
  Sex: Male

DRUGS (5)
  1. TARDYFERON [Concomitant]
     Active Substance: FERROUS SULFATE
  2. SIMVASTATIN 40MG [Concomitant]
     Active Substance: SIMVASTATIN
  3. LOSARTAN 50 [Concomitant]
     Active Substance: LOSARTAN
  4. CLOPIDOGREL [Suspect]
     Active Substance: CLOPIDOGREL BISULFATE
     Indication: CEREBROVASCULAR ACCIDENT PROPHYLAXIS
     Dosage: ?          QUANTITY:1 CAPSULE(S);?
     Route: 048
     Dates: start: 20180315, end: 20180317
  5. OMEPRAZOLE. [Concomitant]
     Active Substance: OMEPRAZOLE

REACTIONS (4)
  - Swollen tongue [None]
  - Lip swelling [None]
  - Paraesthesia [None]
  - Speech disorder [None]

NARRATIVE: CASE EVENT DATE: 20180316
